FAERS Safety Report 12854556 (Version 1)
Quarter: 2016Q4

REPORT INFORMATION
  Report Type: Spontaneous
  Country: US (occurrence: US)
  Receive Date: 20161017
  Receipt Date: 20161017
  Transmission Date: 20170207
  Serious: Yes (Other)
  Sender: FDA-Public Use
  Company Number: US-AMGEN-USASP2016140862

PATIENT

DRUGS (7)
  1. TAXOTERE [Suspect]
     Active Substance: DOCETAXEL
     Indication: INVASIVE DUCTAL BREAST CARCINOMA
     Dosage: UNK
     Route: 065
     Dates: start: 201609
  2. PERJETA [Suspect]
     Active Substance: PERTUZUMAB
     Indication: INVASIVE DUCTAL BREAST CARCINOMA
     Dosage: UNK
     Route: 065
  3. NEULASTA [Suspect]
     Active Substance: PEGFILGRASTIM
     Indication: INVASIVE DUCTAL BREAST CARCINOMA
     Dosage: UNK
     Route: 065
     Dates: start: 201609
  4. CALCIUM [Concomitant]
     Active Substance: CALCIUM
     Dosage: 3000 MG, UNK
  5. HERCEPTIN [Suspect]
     Active Substance: TRASTUZUMAB
     Indication: INVASIVE DUCTAL BREAST CARCINOMA
     Dosage: UNK
     Route: 065
  6. CARBOPLATIN. [Suspect]
     Active Substance: CARBOPLATIN
     Indication: INVASIVE DUCTAL BREAST CARCINOMA
     Dosage: UNK
     Route: 065
     Dates: start: 201609
  7. VITAMIN D [Concomitant]
     Active Substance: CHOLECALCIFEROL
     Dosage: 2000 MG, UNK

REACTIONS (16)
  - Pain [Unknown]
  - Nausea [Unknown]
  - Hypoaesthesia oral [Unknown]
  - Dry eye [Unknown]
  - Dyspepsia [Unknown]
  - Necrosis [Unknown]
  - Feeling abnormal [Unknown]
  - Oral candidiasis [Unknown]
  - Abscess [Unknown]
  - Rhinorrhoea [Unknown]
  - Rash [Unknown]
  - Nasal ulcer [Unknown]
  - Laceration [Unknown]
  - Impaired healing [Unknown]
  - Postoperative wound infection [Unknown]
  - Acne [Unknown]

NARRATIVE: CASE EVENT DATE: 2016
